FAERS Safety Report 17606844 (Version 1)
Quarter: 2020Q1

REPORT INFORMATION
  Report Type: Spontaneous
  Country: US (occurrence: US)
  Receive Date: 20200331
  Receipt Date: 20200331
  Transmission Date: 20200409
  Serious: Yes (Life-Threatening, Hospitalization, Other)
  Sender: FDA-Public Use
  Company Number: US-NOVOPROD-720522

PATIENT
  Sex: Male

DRUGS (1)
  1. LEVEMIR [Suspect]
     Active Substance: INSULIN DETEMIR
     Indication: PRODUCT USED FOR UNKNOWN INDICATION
     Dosage: UNK
     Route: 058
     Dates: start: 2013

REACTIONS (4)
  - Gangrene [Unknown]
  - Loss of consciousness [Unknown]
  - Fall [Not Recovered/Not Resolved]
  - Muscle strain [Not Recovered/Not Resolved]

NARRATIVE: CASE EVENT DATE: 2015
